FAERS Safety Report 5927586-X (Version None)
Quarter: 2008Q4

REPORT INFORMATION
  Report Type: 
  Country: None (occurrence: None)
  Receive Date: 20081020
  Receipt Date: 20081008
  Transmission Date: 20090506
  Serious: Yes (Hospitalization)
  Sender: FDA-Public Use
  Company Number: 20363

PATIENT
  Age: 64 Year
  Sex: Female

DRUGS (11)
  1. CYTARABINE [Suspect]
     Indication: ACUTE LYMPHOCYTIC LEUKAEMIA
     Dosage: 6000 MG BID
     Dates: start: 20081002, end: 20081002
  2. METHOTREXATE [Suspect]
     Indication: ACUTE LYMPHOCYTIC LEUKAEMIA
     Dosage: 400 MG IV
     Route: 042
     Dates: start: 20081001
  3. GLEEVEC [Suspect]
     Indication: ACUTE LYMPHOCYTIC LEUKAEMIA
  4. LEUCOVORIN CALCIUM [Concomitant]
  5. VINCRISTINE [Concomitant]
  6. CYTOXAN [Concomitant]
  7. DOXORUBICIN HCL [Concomitant]
  8. NEUPOGEN [Concomitant]
  9. MESNA [Concomitant]
  10. DEXAMETHASONE [Concomitant]
  11. METHYLPREDNISOLONE 16MG TAB [Concomitant]

REACTIONS (10)
  - APHASIA [None]
  - DEPRESSED LEVEL OF CONSCIOUSNESS [None]
  - DIALYSIS [None]
  - DRUG INTERACTION [None]
  - GAIT DISTURBANCE [None]
  - HYPOREFLEXIA [None]
  - NEUROTOXICITY [None]
  - NYSTAGMUS [None]
  - POSTURE ABNORMAL [None]
  - RENAL FAILURE ACUTE [None]
